FAERS Safety Report 21555352 (Version 1)
Quarter: 2022Q4

REPORT INFORMATION
  Report Type: Spontaneous
  Country: US (occurrence: US)
  Receive Date: 20221104
  Receipt Date: 20221104
  Transmission Date: 20230113
  Serious: Yes (Disabling, Other)
  Sender: FDA-Public Use
  Company Number: US-REGENERON PHARMACEUTICALS, INC.-2022-140286

PATIENT
  Sex: Female

DRUGS (1)
  1. EYLEA [Suspect]
     Active Substance: AFLIBERCEPT
     Indication: Macular degeneration
     Dosage: UNK (FORMULATION: UNKNOWN)
     Route: 065

REACTIONS (4)
  - Blindness [Unknown]
  - Metamorphopsia [Unknown]
  - Blood pressure increased [Unknown]
  - Blood glucose increased [Unknown]
